FAERS Safety Report 24611864 (Version 1)
Quarter: 2024Q4

REPORT INFORMATION
  Report Type: Spontaneous
  Country: AE (occurrence: AE)
  Receive Date: 20241113
  Receipt Date: 20241113
  Transmission Date: 20250115
  Serious: Yes (Hospitalization)
  Sender: NOVITIUM PHARMA
  Company Number: AE-NOVITIUMPHARMA-2024AENVP02544

PATIENT
  Age: 44 Year
  Sex: Female

DRUGS (10)
  1. PYRAZINAMIDE [Suspect]
     Active Substance: PYRAZINAMIDE
     Indication: Atypical mycobacterial infection
  2. PYRAZINAMIDE [Suspect]
     Active Substance: PYRAZINAMIDE
  3. ISONIAZID [Concomitant]
     Active Substance: ISONIAZID
     Indication: Atypical mycobacterial infection
  4. RIFAMPIN [Concomitant]
     Active Substance: RIFAMPIN
     Indication: Atypical mycobacterial infection
  5. ETHAMBUTOL [Concomitant]
     Active Substance: ETHAMBUTOL HYDROCHLORIDE
     Indication: Atypical mycobacterial infection
  6. ETHAMBUTOL [Concomitant]
     Active Substance: ETHAMBUTOL HYDROCHLORIDE
  7. PYRIDOXINE [Concomitant]
     Active Substance: PYRIDOXINE
     Indication: Product used for unknown indication
  8. LINEZOLID [Concomitant]
     Active Substance: LINEZOLID
     Indication: Atypical mycobacterial infection
  9. MOXIFLOXACIN [Concomitant]
     Active Substance: MOXIFLOXACIN
     Indication: Atypical mycobacterial infection
  10. CLARITHROMYCIN [Concomitant]
     Active Substance: CLARITHROMYCIN
     Indication: Product used for unknown indication

REACTIONS (1)
  - Treatment noncompliance [Unknown]
